FAERS Safety Report 9171467 (Version 2)
Quarter: 2013Q2

REPORT INFORMATION
  Report Type: Spontaneous
  Country: US (occurrence: None)
  Receive Date: 20130205
  Receipt Date: 20130403
  Transmission Date: 20140414
  Serious: Yes (Death, Hospitalization, Other)
  Sender: FDA-Public Use
  Company Number: 2013PROUSA02505

PATIENT
  Age: 66 Year
  Sex: Male
  Weight: 83.4 kg

DRUGS (21)
  1. PROVENGE (SIPULEUCEL-T) SUSPENSION [Suspect]
     Indication: PROSTATE CANCER METASTATIC
     Dosage: 250 ML, SINGLE, INTRAVENOUS
     Route: 042
     Dates: start: 20130107, end: 20130107
  2. ATENOLOL (ATENOLOL) [Concomitant]
  3. DILTIAZEM (DILTIAZEM HYDROCHLORIDE) [Concomitant]
  4. INTELENCE (ETRAVIRINE) [Concomitant]
  5. ISENTRESS (RALTEGRAVIR POTASSIUM) [Concomitant]
  6. LANTUS (INSULIN GLARGINE) [Concomitant]
  7. TRIAMTERENE AND HYDROCHLOROTHIAZID (HYDROCHLOROTHIAZIDE, TRIAMTERENE) [Concomitant]
  8. TRUVADA (EMTRICITABINE, TENOFOVIR DISOPROXIL FUMARATE) [Concomitant]
  9. LUPRON DEPOT-4 MONTH (LEUPRORELIN ACETATE) [Concomitant]
  10. NORVIR (RITONAVIR) [Concomitant]
  11. REYATAZ (ATAZANAVIR SULFATE) [Concomitant]
  12. VIREAD (TENOFOVIR DISOPROXIL FUMARATE) [Concomitant]
  13. BICALUTAMIDE (BICALUTAMIDE) [Concomitant]
  14. DIDANOSINE (DIDANOSINE) [Concomitant]
  15. GABAPENTIN (GABAPENTIN) [Concomitant]
  16. LISINOPRIL (LISINOPRIL) [Concomitant]
  17. METHOCARBAMOL (METHOCARBAMOL) [Concomitant]
  18. OMEPRAZOLE (OMEPRAZOLE) [Concomitant]
  19. ZOLPIDEM (ZOLPIDEM TARTRATE) [Concomitant]
  20. EDEX (ALPROSTADIL) [Concomitant]
  21. FLOMAX (TAMSULOSIN HYDROCHLORIDE) [Suspect]

REACTIONS (8)
  - Haemorrhage intracranial [None]
  - Fall [None]
  - Head injury [None]
  - Loss of consciousness [None]
  - Subdural haematoma [None]
  - Subarachnoid haemorrhage [None]
  - Thrombocytopenia [None]
  - Hyponatraemia [None]
